FAERS Safety Report 16366286 (Version 2)
Quarter: 2019Q2

REPORT INFORMATION
  Report Type: Spontaneous
  Country: US (occurrence: US)
  Receive Date: 20190529
  Receipt Date: 20190613
  Transmission Date: 20190711
  Serious: No
  Sender: FDA-Public Use
  Company Number: US-AMGEN-USASP2019082089

PATIENT
  Sex: Female

DRUGS (2)
  1. REPATHA [Suspect]
     Active Substance: EVOLOCUMAB
     Indication: ARTERIOSCLEROSIS CORONARY ARTERY
     Dosage: 140 MILLIGRAM PER MILLILITRE, Q2WK
     Route: 058
     Dates: start: 20190312
  2. BRILINTA [Concomitant]
     Active Substance: TICAGRELOR

REACTIONS (3)
  - Drug hypersensitivity [Not Recovered/Not Resolved]
  - Throat tightness [Recovering/Resolving]
  - Alopecia [Recovering/Resolving]
